FAERS Safety Report 7024457-5 (Version None)
Quarter: 2010Q4

REPORT INFORMATION
  Report Type: 
  Country: None (occurrence: None)
  Receive Date: 20101001
  Receipt Date: 20100921
  Transmission Date: 20110411
  Serious: Yes (Hospitalization)
  Sender: FDA-Public Use
  Company Number: GB-JNJFOC-20100801519

PATIENT
  Sex: Female
  Weight: 92 kg

DRUGS (12)
  1. BLINDED; USTEKINUMA [Suspect]
     Indication: CROHN'S DISEASE
     Route: 058
  2. BLINDED; USTEKINUMA [Suspect]
     Route: 058
  3. PLACEBO [Suspect]
     Indication: CROHN'S DISEASE
     Route: 058
  4. PLACEBO [Suspect]
     Route: 058
  5. USTEKINUMAB-BLINDED [Suspect]
     Route: 042
  6. USTEKINUMAB-BLINDED [Suspect]
     Indication: CROHN'S DISEASE
     Route: 042
  7. PLACEBO [Suspect]
     Route: 042
  8. LOPERAMIDE [Concomitant]
     Route: 048
  9. FERROUS FUMERATE [Concomitant]
     Route: 048
  10. CIPROFLOXACIN [Concomitant]
     Indication: CROHN'S DISEASE
     Route: 048
  11. AZATHIOPRINE [Concomitant]
     Route: 048
  12. FOLIC ACID [Concomitant]
     Route: 048

REACTIONS (2)
  - BETA HAEMOLYTIC STREPTOCOCCAL INFECTION [None]
  - CROHN'S DISEASE [None]
